FAERS Safety Report 6084266-0 (Version None)
Quarter: 2009Q1

REPORT INFORMATION
  Report Type: 
  Country: None (occurrence: None)
  Receive Date: 20090219
  Receipt Date: 20090211
  Transmission Date: 20090719
  Serious: Yes (Other)
  Sender: FDA-Public Use
  Company Number: PHEH2009US01659

PATIENT

DRUGS (1)
  1. FEMARA [Suspect]

REACTIONS (3)
  - IMPAIRED HEALING [None]
  - INFECTION [None]
  - TOOTH EXTRACTION [None]
